FAERS Safety Report 19590252 (Version 1)
Quarter: 2021Q3

REPORT INFORMATION
  Report Type: Spontaneous
  Country: US (occurrence: US)
  Receive Date: 20210721
  Receipt Date: 20210721
  Transmission Date: 20211014
  Serious: Yes (Hospitalization, Other)
  Sender: FDA-Public Use
  Company Number: US-CONCORD BIOTECH LIMITED-CBL202107-000350

PATIENT
  Age: 76 Year
  Sex: Female

DRUGS (8)
  1. PREDNISONE. [Suspect]
     Active Substance: PREDNISONE
     Dosage: 5?10 MG; ONCE A DAY
  2. METHYLPREDNISOLONE. [Suspect]
     Active Substance: METHYLPREDNISOLONE
     Dosage: 250/125/125 MG
     Dates: start: 20200227, end: 20200229
  3. PREDNISONE. [Suspect]
     Active Substance: PREDNISONE
     Indication: LUNG TRANSPLANT
     Dosage: 10 MG DAILY
  4. METHYLPREDNISOLONE. [Suspect]
     Active Substance: METHYLPREDNISOLONE
     Indication: LUNG TRANSPLANT REJECTION
     Dosage: 3?DAY COURSE (500 MG)
     Dates: start: 20200203, end: 20200205
  5. METHYLPREDNISOLONE. [Suspect]
     Active Substance: METHYLPREDNISOLONE
     Dosage: 125 MG (3 TIMES)
     Dates: start: 20200305, end: 20200307
  6. TACROLIMUS. [Suspect]
     Active Substance: TACROLIMUS
     Indication: LUNG TRANSPLANT
     Dosage: TROUGH 6?8 NG/ML
  7. MYCOPHENOLIC ACID DR [Suspect]
     Active Substance: MYCOPHENOLIC ACID
     Indication: LUNG TRANSPLANT
     Dosage: 360 MG; TWICE DAILY
     Dates: end: 20200407
  8. ATG [Suspect]
     Active Substance: LAPINE T-LYMPHOCYTE IMMUNE GLOBULIN
     Indication: LUNG TRANSPLANT REJECTION
     Dosage: 3?DAY COURSE (75 MG)
     Dates: start: 20200305, end: 20200307

REACTIONS (4)
  - COVID-19 [Recovered/Resolved]
  - Product use in unapproved indication [Unknown]
  - Transplant rejection [Not Recovered/Not Resolved]
  - Complications of transplanted lung [Not Recovered/Not Resolved]

NARRATIVE: CASE EVENT DATE: 2020
